FAERS Safety Report 7438962-0 (Version None)
Quarter: 2011Q2

REPORT INFORMATION
  Report Type: 
  Country: None (occurrence: None)
  Receive Date: 20110426
  Receipt Date: 20110412
  Transmission Date: 20111010
  Serious: Yes (Other)
  Sender: FDA-Public Use
  Company Number: DE-MYLANLABS-2011S1007836

PATIENT
  Age: 76 Year
  Sex: Male

DRUGS (4)
  1. ESCITALOPRAM [Concomitant]
     Route: 065
  2. GALANTAMINE HYDROBROMIDE [Suspect]
     Indication: DEMENTIA ALZHEIMER'S TYPE
     Route: 065
  3. GALANTAMINE HYDROBROMIDE [Suspect]
     Route: 065
  4. LITHIUM [Concomitant]
     Route: 065

REACTIONS (1)
  - MANIA [None]
